FAERS Safety Report 6438654-0 (Version None)
Quarter: 2009Q4

REPORT INFORMATION
  Report Type: 
  Country: None (occurrence: None)
  Receive Date: 20091110
  Receipt Date: 20091026
  Transmission Date: 20100525
  Serious: Yes (Death, Hospitalization)
  Sender: FDA-Public Use
  Company Number: 2009AC000317

PATIENT
  Age: 73 Year
  Sex: Male
  Weight: 120.2032 kg

DRUGS (31)
  1. DIGITEK [Suspect]
     Indication: CARDIAC DISORDER
     Dosage: 0.25 MG; QD; PO
     Route: 048
  2. K-DUR [Concomitant]
  3. LOTREL [Concomitant]
  4. ASPIRIN [Concomitant]
  5. SINGULAIR [Concomitant]
  6. VYTORIN [Concomitant]
  7. GLUCOPHAGE [Concomitant]
  8. GLUCOTROL [Concomitant]
  9. LANTUS [Concomitant]
  10. FLOMAX [Concomitant]
  11. ATIVAN [Concomitant]
  12. TOPROL-XL [Concomitant]
  13. XOPENEX [Concomitant]
  14. NITROGLYCERIN [Concomitant]
  15. CYMBALTA [Concomitant]
  16. LORAZEPAM [Concomitant]
  17. HYDROCODONE BITARTRATE + ACETAMINOPHEN [Concomitant]
  18. KLOR-CON [Concomitant]
  19. METFORMIN [Concomitant]
  20. GLIPIZIDE [Concomitant]
  21. LASIX [Concomitant]
  22. NITROGLYCERIN [Concomitant]
  23. ACCUPRIL [Concomitant]
  24. LORTAB [Concomitant]
  25. XOPENEX [Concomitant]
  26. AMARYL [Concomitant]
  27. PROZAC [Concomitant]
  28. ALBUTEROL [Concomitant]
  29. DARVON [Concomitant]
  30. TRAZODONE HCL [Concomitant]
  31. ZESTRIL [Concomitant]

REACTIONS (16)
  - ANXIETY [None]
  - BENIGN PROSTATIC HYPERPLASIA [None]
  - BLOOD POTASSIUM INCREASED [None]
  - BLOOD PRESSURE INCREASED [None]
  - CARDIAC FAILURE CONGESTIVE [None]
  - CHRONIC OBSTRUCTIVE PULMONARY DISEASE [None]
  - DIABETES MELLITUS [None]
  - ECONOMIC PROBLEM [None]
  - HYPERTENSION [None]
  - INJURY [None]
  - INTERVERTEBRAL DISC DISORDER [None]
  - PAIN [None]
  - PULMONARY OEDEMA [None]
  - SOCIAL AVOIDANT BEHAVIOUR [None]
  - THERAPEUTIC AGENT TOXICITY [None]
  - UNEVALUABLE EVENT [None]
